FAERS Safety Report 8426168-8 (Version None)
Quarter: 2012Q2

REPORT INFORMATION
  Report Type: 
  Country: None (occurrence: None)
  Receive Date: 20120611
  Receipt Date: 20120320
  Transmission Date: 20120825
  Serious: No
  Sender: FDA-Public Use
  Company Number: US-MYLANLABS-2012S1006297

PATIENT
  Sex: Female

DRUGS (1)
  1. DOXEPIN HYDROCHLORIDE [Suspect]
     Indication: PAIN
     Route: 048
     Dates: start: 20120313

REACTIONS (1)
  - NIGHT SWEATS [None]
